FAERS Safety Report 10705434 (Version 2)
Quarter: 2015Q1

REPORT INFORMATION
  Report Type: Spontaneous
  Country: US (occurrence: US)
  Receive Date: 20150112
  Receipt Date: 20150112
  Transmission Date: 20150721
  Serious: No
  Sender: FDA-Public Use
  Company Number: US-GLAXOSMITHKLINE-A1066553A

PATIENT

DRUGS (1)
  1. PROMACTA [Suspect]
     Active Substance: ELTROMBOPAG OLAMINE
     Indication: THROMBOCYTOPENIA
     Dosage: UNKNOWN STRENGTH AND DOSING
     Route: 065

REACTIONS (4)
  - Nausea [Unknown]
  - Swelling [Unknown]
  - Arthralgia [Unknown]
  - Pain in jaw [Unknown]
